FAERS Safety Report 6073882-8 (Version None)
Quarter: 2009Q1

REPORT INFORMATION
  Report Type: 
  Country: None (occurrence: None)
  Receive Date: 20090209
  Receipt Date: 20090209
  Transmission Date: 20090719
  Serious: Yes (Life-Threatening, Hospitalization, Disabling)
  Sender: FDA-Public Use
  Company Number: None

PATIENT
  Age: 22 Year
  Sex: Female
  Weight: 79.3795 kg

DRUGS (2)
  1. PRISTIQ [Suspect]
     Indication: ANXIETY
     Dosage: 50MG ONCE DAILY PO
     Route: 048
     Dates: start: 20090204, end: 20090205
  2. PRISTIQ [Suspect]
     Indication: PANIC ATTACK
     Dosage: 50MG ONCE DAILY PO
     Route: 048
     Dates: start: 20090204, end: 20090205

REACTIONS (14)
  - ABDOMINAL DISCOMFORT [None]
  - ABNORMAL DREAMS [None]
  - ERYTHEMA [None]
  - HEADACHE [None]
  - HYPOAESTHESIA [None]
  - LIP DISCOLOURATION [None]
  - MUSCLE SPASMS [None]
  - PERIPHERAL COLDNESS [None]
  - RASH MACULAR [None]
  - SKIN DISCOLOURATION [None]
  - SUPERFICIAL VEIN PROMINENCE [None]
  - TONGUE DISCOLOURATION [None]
  - TREMOR [None]
  - VEIN DISORDER [None]
